FAERS Safety Report 20805171 (Version 1)
Quarter: 2022Q2

REPORT INFORMATION
  Report Type: Spontaneous
  Country: US (occurrence: US)
  Receive Date: 20220509
  Receipt Date: 20220509
  Transmission Date: 20220721
  Serious: No
  Sender: FDA-Public Use
  Company Number: US-Blueprint Medicines Corporation-SP-US-2022-001209

PATIENT
  Age: 45 Year
  Sex: Female

DRUGS (1)
  1. AYVAKIT [Suspect]
     Active Substance: AVAPRITINIB
     Indication: Systemic mastocytosis
     Route: 048
     Dates: start: 20160916

REACTIONS (11)
  - Oropharyngeal pain [Unknown]
  - Pharyngeal swelling [Unknown]
  - Fatigue [Unknown]
  - Swelling face [Unknown]
  - Product dose omission issue [Unknown]
  - Inflammation [Unknown]
  - Exposure to toxic agent [Unknown]
  - COVID-19 [Unknown]
  - Ear infection [Unknown]
  - Sinusitis [Unknown]
  - Drug hypersensitivity [Unknown]

NARRATIVE: CASE EVENT DATE: 20220415
